FAERS Safety Report 17582901 (Version 1)
Quarter: 2020Q1

REPORT INFORMATION
  Report Type: Other
  Country: US (occurrence: US)
  Receive Date: 20200325
  Receipt Date: 20200325
  Transmission Date: 20200409
  Serious: No
  Sender: FDA-Public Use
  Company Number: US-VERASTEM-2020-00003

PATIENT

DRUGS (2)
  1. COPIKTRA [Suspect]
     Active Substance: DUVELISIB
     Indication: B-CELL LYMPHOMA
     Dosage: 15 MG, BID
     Route: 048
     Dates: start: 20190831
  2. COPIKTRA [Suspect]
     Active Substance: DUVELISIB
     Dosage: 15 MG, BID
     Route: 048
     Dates: end: 20200109

REACTIONS (5)
  - Nausea [Unknown]
  - Pyrexia [Unknown]
  - Prescribed underdose [Unknown]
  - Liver function test abnormal [Unknown]
  - Diarrhoea [Unknown]

NARRATIVE: CASE EVENT DATE: 20190831
